FAERS Safety Report 13716848 (Version 3)
Quarter: 2018Q2

REPORT INFORMATION
  Report Type: Spontaneous
  Country: IT (occurrence: IT)
  Receive Date: 20170705
  Receipt Date: 20180605
  Transmission Date: 20180711
  Serious: Yes (Hospitalization)
  Sender: FDA-Public Use
  Company Number: PHHY2017IT097681

PATIENT
  Age: 63 Year
  Sex: Male
  Weight: 70 kg

DRUGS (4)
  1. ASPIRIN. [Concomitant]
     Active Substance: ASPIRIN
     Indication: PRODUCT USED FOR UNKNOWN INDICATION
     Dosage: 100 MG, QOD
     Route: 048
  2. TACHIDOL [Concomitant]
     Active Substance: ACETAMINOPHEN\CODEINE PHOSPHATE
     Indication: ARTHRALGIA
     Dosage: 1 DF, PRN (500MG/30MG)
     Route: 065
  3. MAALOX ANTACID [Concomitant]
     Active Substance: ALUMINUM HYDROXIDE\DIMETHICONE\MAGNESIUM HYDROXIDE
     Indication: GASTROINTESTINAL PAIN
     Dosage: 1 DF, PRN (400MG+400MG- TABLET)
     Route: 048
  4. TASIGNA [Suspect]
     Active Substance: NILOTINIB
     Indication: CHRONIC MYELOID LEUKAEMIA
     Dosage: 400 MG, QD
     Route: 048
     Dates: start: 20160816, end: 20170502

REACTIONS (1)
  - Acute myocardial infarction [Recovered/Resolved with Sequelae]

NARRATIVE: CASE EVENT DATE: 20170424
